FAERS Safety Report 6699511-8 (Version None)
Quarter: 2010Q2

REPORT INFORMATION
  Report Type: 
  Country: None (occurrence: None)
  Receive Date: 20100427
  Receipt Date: 20100427
  Transmission Date: 20101027
  Serious: No
  Sender: FDA-Public Use
  Company Number: None

PATIENT
  Age: 85 Year
  Sex: Male
  Weight: 63 kg

DRUGS (1)
  1. HALOPERIDOL [Suspect]
     Indication: AGITATION

REACTIONS (3)
  - ABASIA [None]
  - AGITATION [None]
  - DIZZINESS [None]
